FAERS Safety Report 19067632 (Version 1)
Quarter: 2021Q1

REPORT INFORMATION
  Report Type: Spontaneous
  Country: BE (occurrence: BE)
  Receive Date: 20210329
  Receipt Date: 20210329
  Transmission Date: 20210420
  Serious: Yes (Death, Other)
  Sender: FDA-Public Use
  Company Number: BE-CHEPLA-C20211470

PATIENT
  Age: 59 Year
  Sex: Male

DRUGS (9)
  1. CEFTAZIDIME. [Suspect]
     Active Substance: CEFTAZIDIME
     Indication: BACTERIAL INFECTION
     Dates: start: 2020
  2. HYDROXYCHLOROQUINE [Suspect]
     Active Substance: HYDROXYCHLOROQUINE
     Indication: COVID-19
     Dates: start: 2020
  3. TEMOCILLIN [Suspect]
     Active Substance: TEMOCILLIN
     Indication: BACTERIAL INFECTION
     Dates: start: 2020
  4. FLUCLOXACILLIN [Suspect]
     Active Substance: FLUCLOXACILLIN
     Indication: BACTERIAL INFECTION
     Dates: start: 2020
  5. ACYCLOVIR. [Suspect]
     Active Substance: ACYCLOVIR
     Indication: HERPES SIMPLEX
     Dates: start: 2020
  6. OXACILLIN [Suspect]
     Active Substance: OXACILLIN SODIUM
     Indication: BACTERIAL INFECTION
     Dates: start: 2020
  7. VANCOMYCIN [Suspect]
     Active Substance: VANCOMYCIN
     Indication: BACTERIAL INFECTION
     Dates: start: 2020
  8. GANCICLOVIR. [Suspect]
     Active Substance: GANCICLOVIR
     Indication: HERPES SIMPLEX
     Dates: start: 2020
  9. CIPROFLOXACIN. [Suspect]
     Active Substance: CIPROFLOXACIN
     Indication: BACTERIAL INFECTION
     Dates: start: 2020

REACTIONS (3)
  - Toxicity to various agents [Unknown]
  - Product use in unapproved indication [Unknown]
  - Liver injury [Unknown]

NARRATIVE: CASE EVENT DATE: 2020
